FAERS Safety Report 14952131 (Version 5)
Quarter: 2018Q3

REPORT INFORMATION
  Report Type: Report from Study
  Country: US (occurrence: US)
  Receive Date: 20180530
  Receipt Date: 20180810
  Transmission Date: 20181010
  Serious: Yes (Hospitalization, Other)
  Sender: FDA-Public Use
  Company Number: US-GILEAD-2018-0341426

PATIENT
  Age: 82 Year
  Sex: Female
  Weight: 42 kg

DRUGS (21)
  1. VITAMIN C [Concomitant]
     Active Substance: ASCORBIC ACID
  2. AMBRISENTAN [Suspect]
     Active Substance: AMBRISENTAN
     Indication: PRODUCT USED FOR UNKNOWN INDICATION
     Dosage: 10 MG, QD
     Route: 048
     Dates: start: 20180409
  3. XALATAN [Concomitant]
     Active Substance: LATANOPROST
  4. CORTISPORIN                        /00271401/ [Concomitant]
  5. OMEPRAZOL                          /00661201/ [Concomitant]
     Active Substance: OMEPRAZOLE
  6. OXYGEN. [Concomitant]
     Active Substance: OXYGEN
  7. IRON                               /00023503/ [Concomitant]
     Active Substance: IRON
  8. PREMARIN [Concomitant]
     Active Substance: ESTROGENS, CONJUGATED
  9. TYLENOL [Concomitant]
     Active Substance: ACETAMINOPHEN
  10. TYVASO [Concomitant]
     Active Substance: TREPROSTINIL
  11. ALBUTEROL                          /00139501/ [Concomitant]
     Active Substance: ALBUTEROL
  12. TENORMIN [Concomitant]
     Active Substance: ATENOLOL
  13. FLONASE [Concomitant]
     Active Substance: FLUTICASONE PROPIONATE
  14. LIPITOR [Concomitant]
     Active Substance: ATORVASTATIN CALCIUM
  15. HYDRODIURIL [Concomitant]
     Active Substance: HYDROCHLOROTHIAZIDE
  16. LASIX [Concomitant]
     Active Substance: FUROSEMIDE
  17. MIRALAX [Concomitant]
     Active Substance: POLYETHYLENE GLYCOL 3350
  18. FLEXERIL [Concomitant]
     Active Substance: CYCLOBENZAPRINE HYDROCHLORIDE
  19. COZAAR [Concomitant]
     Active Substance: LOSARTAN POTASSIUM
  20. VITAMIN B12 [Concomitant]
     Active Substance: CYANOCOBALAMIN
  21. METFORMIN [Concomitant]
     Active Substance: METFORMIN HYDROCHLORIDE

REACTIONS (9)
  - Diarrhoea [Not Recovered/Not Resolved]
  - Hypomagnesaemia [Recovering/Resolving]
  - Electrolyte imbalance [Recovering/Resolving]
  - Abdominal discomfort [Recovered/Resolved]
  - Diarrhoea haemorrhagic [Unknown]
  - Cyanosis [Recovering/Resolving]
  - Blood potassium decreased [Recovering/Resolving]
  - Frequent bowel movements [Recovering/Resolving]
  - Haematochezia [Not Recovered/Not Resolved]

NARRATIVE: CASE EVENT DATE: 20180608
